FAERS Safety Report 22335711 (Version 1)
Quarter: 2023Q2

REPORT INFORMATION
  Report Type: Spontaneous
  Country: US (occurrence: US)
  Receive Date: 20230518
  Receipt Date: 20230518
  Transmission Date: 20230722
  Serious: Yes (Other)
  Sender: FDA-Public Use
  Company Number: US-AVET LIFESCIENCES LTD-2023-AVET-000122

PATIENT

DRUGS (2)
  1. PROPOFOL [Suspect]
     Active Substance: PROPOFOL
     Indication: General anaesthesia
     Dosage: BETWEEN 300 AND 500MG BETWEEN 7.15 A.M. TO 11 A.M.
     Route: 042
     Dates: start: 20230509
  2. LIDOCAINE [Concomitant]
     Active Substance: LIDOCAINE
     Dosage: 100ML OF 2%
     Route: 065

REACTIONS (3)
  - Chills [Recovering/Resolving]
  - Back pain [Recovering/Resolving]
  - Migraine [Unknown]
